FAERS Safety Report 9985207 (Version 1)
Quarter: 2014Q1

REPORT INFORMATION
  Report Type: Report from Study
  Country: US (occurrence: US)
  Receive Date: 20140307
  Receipt Date: 20140307
  Transmission Date: 20141002
  Serious: No
  Sender: FDA-Public Use
  Company Number: US-ABBVIE-13P-163-1184971-00

PATIENT
  Age: 47 Year
  Sex: Female

DRUGS (3)
  1. HUMIRA [Suspect]
     Indication: COLITIS ULCERATIVE
     Dates: start: 20131019
  2. ALPRAZOLAM [Concomitant]
     Indication: NERVOUSNESS
     Dosage: UP TO 3 TIMES A DAY
  3. HCTZ [Concomitant]
     Indication: BLOOD PRESSURE

REACTIONS (1)
  - Herpes zoster [Not Recovered/Not Resolved]
